FAERS Safety Report 21888166 (Version 1)
Quarter: 2023Q1

REPORT INFORMATION
  Report Type: Report from Study
  Country: US (occurrence: US)
  Receive Date: 20230120
  Receipt Date: 20230120
  Transmission Date: 20230418
  Serious: No
  Sender: FDA-Public Use
  Company Number: US-ABBVIE-4246444

PATIENT
  Sex: Female

DRUGS (2)
  1. HUMIRA [Suspect]
     Active Substance: ADALIMUMAB
     Indication: Rheumatoid arthritis
     Dosage: CITRATE FREE, STRENGTH: 40 MG
     Route: 058
     Dates: start: 202212
  2. HUMIRA [Suspect]
     Active Substance: ADALIMUMAB
     Dosage: CITRATE FREE, STRENGTH: 40 MG, DISCONTINUED IN 2022?ONSET FOR COUGHING, RESPIRATORY INFECTION AND...
     Route: 058
     Dates: start: 20221120

REACTIONS (3)
  - Sinus disorder [Recovering/Resolving]
  - Respiratory tract infection [Recovering/Resolving]
  - Cough [Recovering/Resolving]
